FAERS Safety Report 5460937-1 (Version None)
Quarter: 2007Q3

REPORT INFORMATION
  Report Type: 
  Country: None (occurrence: None)
  Receive Date: 20070810
  Receipt Date: 20070103
  Transmission Date: 20080115
  Serious: Yes (Death, Other)
  Sender: FDA-Public Use
  Company Number: 200615867BWH

PATIENT
  Age: 68 Year
  Sex: Female
  Weight: 64.8644 kg

DRUGS (20)
  1. TRASYLOL [Suspect]
     Indication: CORONARY ARTERY BYPASS
     Dosage: 1 ML, ONCE, INTRAVENOUS; INTRAVENOUS, INTRAVENOUS
     Route: 042
     Dates: start: 20060701
  2. TRASYLOL [Suspect]
     Indication: CORONARY ARTERY BYPASS
     Dosage: 1 ML, ONCE, INTRAVENOUS; INTRAVENOUS, INTRAVENOUS
     Route: 042
     Dates: start: 20061006
  3. TRASYLOL [Suspect]
     Indication: CORONARY ARTERY BYPASS
     Dosage: 1 ML, ONCE, INTRAVENOUS; INTRAVENOUS, INTRAVENOUS
     Route: 042
     Dates: start: 20061006
  4. PEPCID [Concomitant]
  5. DIPHENHYDRAMINE HCL [Concomitant]
  6. SOLU-MEDROL [Concomitant]
  7. ASPIRIN [Concomitant]
  8. METOPROLOL SUCCINATE [Concomitant]
  9. LEXAPRO [Concomitant]
  10. AMIODARONE HCL [Concomitant]
  11. LOVENOX [Concomitant]
  12. PRINIVIL [Concomitant]
  13. UNASYN [Concomitant]
  14. GENTAMICIN [Concomitant]
  15. PCN-G (PENICILLIN) [Concomitant]
  16. VANCOMYCIN [Concomitant]
  17. THIOPENTAL SODIUM [Concomitant]
  18. FENTANYL [Concomitant]
  19. SUCCINYLCHOLINE CHLORIDE [Concomitant]
  20. VERSED [Concomitant]

REACTIONS (4)
  - ANAPHYLACTIC REACTION [None]
  - CIRCULATORY COLLAPSE [None]
  - DEATH [None]
  - HYPOTENSION [None]
